FAERS Safety Report 8364380-7 (Version None)
Quarter: 2012Q2

REPORT INFORMATION
  Report Type: 
  Country: None (occurrence: None)
  Receive Date: 20120516
  Receipt Date: 20120423
  Transmission Date: 20120825
  Serious: Yes (Hospitalization)
  Sender: FDA-Public Use
  Company Number: PHHO2012DE006360

PATIENT
  Sex: Female
  Weight: 72 kg

DRUGS (5)
  1. NO TREATMENT RECEIVED [Suspect]
     Indication: RENAL TRANSPLANT
     Dosage: NO TREATMENT
  2. CERTICAN [Suspect]
     Dosage: 1 MG, QD
     Route: 048
  3. PROGRAF [Concomitant]
     Indication: RENAL TRANSPLANT
     Dosage: 15 MG, UNK
     Route: 048
     Dates: start: 20100917
  4. CERTICAN [Suspect]
     Dosage: 0.75 MG, QD
     Route: 048
     Dates: start: 20120201
  5. CERTICAN [Suspect]
     Indication: RENAL TRANSPLANT
     Dosage: 0.75 MG, BID
     Route: 048
     Dates: start: 20101001, end: 20120214

REACTIONS (1)
  - TOXICITY TO VARIOUS AGENTS [None]
